FAERS Safety Report 7445681-3 (Version None)
Quarter: 2011Q2

REPORT INFORMATION
  Report Type: 
  Country: None (occurrence: None)
  Receive Date: 20110429
  Receipt Date: 20100503
  Transmission Date: 20111010
  Serious: No
  Sender: FDA-Public Use
  Company Number: US-ASTRAZENECA-2010SE19705

PATIENT
  Age: 56 Year
  Sex: Female

DRUGS (1)
  1. NEXIUM [Suspect]
     Route: 048

REACTIONS (9)
  - SPEECH DISORDER [None]
  - PAIN [None]
  - FALL [None]
  - STENT MALFUNCTION [None]
  - GAIT DISTURBANCE [None]
  - ARTERIAL RUPTURE [None]
  - SCIATIC NERVE INJURY [None]
  - INJURY [None]
  - AMNESIA [None]
